FAERS Safety Report 5235591-4 (Version None)
Quarter: 2007Q1

REPORT INFORMATION
  Report Type: 
  Country: None (occurrence: None)
  Receive Date: 20070212
  Receipt Date: 20070201
  Transmission Date: 20070707
  Serious: Yes (Hospitalization)
  Sender: FDA-Public Use
  Company Number: PHBS2007ES01647

PATIENT
  Sex: Male

DRUGS (2)
  1. CORTICOSTEROIDS [Concomitant]
     Route: 065
  2. ZOMETA [Suspect]
     Indication: METASTASES TO BONE
     Route: 065

REACTIONS (7)
  - HYPERTENSIVE CRISIS [None]
  - NEPHROTIC SYNDROME [None]
  - OEDEMA [None]
  - OEDEMA PERIPHERAL [None]
  - RECTAL HAEMORRHAGE [None]
  - VASCULITIS [None]
  - WEIGHT INCREASED [None]
